FAERS Safety Report 20409363 (Version 1)
Quarter: 2022Q1

REPORT INFORMATION
  Report Type: Report from Study
  Country: GB (occurrence: GB)
  Receive Date: 20220201
  Receipt Date: 20220201
  Transmission Date: 20220423
  Serious: Yes (Other)
  Sender: FDA-Public Use
  Company Number: GB-GLAXOSMITHKLINE-GB2022GSK010441

PATIENT

DRUGS (5)
  1. MENINGOCOCCAL GROUP B VACCINE [Suspect]
     Active Substance: MENINGOCOCCAL GROUP B VACCINE
     Indication: Prophylaxis
     Route: 030
     Dates: start: 20211217
  2. DIPHTHERIA AND TETANUS TOXOIDS AND ACELLULAR PERTUSSIS ADSORBED, INACT [Suspect]
     Active Substance: DIPHTHERIA AND TETANUS TOXOIDS AND ACELLULAR PERTUSSIS ADSORBED, INACTIVATED POLIOVIRUS AND HAEMOPHI
     Indication: Prophylaxis
     Route: 030
     Dates: start: 20211217
  3. HUMAN ROTAVIRUS A [Suspect]
     Active Substance: HUMAN ROTAVIRUS A
     Indication: Prophylaxis
     Route: 030
     Dates: start: 20211217
  4. CEFTRIAXONE [Concomitant]
     Active Substance: CEFTRIAXONE
     Indication: Periorbital cellulitis
     Dosage: 80 MG/KG ONCE DAILY, WEIGHT 5.08 KG
     Route: 030
     Dates: start: 20211226, end: 20211229
  5. AMOXICILLIN\CLAVULANATE POTASSIUM [Concomitant]
     Active Substance: AMOXICILLIN\CLAVULANATE POTASSIUM
     Indication: Periorbital cellulitis
     Dosage: 1.3 ML TDS
     Route: 048
     Dates: start: 20211230, end: 20220101

REACTIONS (1)
  - Periorbital cellulitis [Recovered/Resolved]

NARRATIVE: CASE EVENT DATE: 20211224
